FAERS Safety Report 20992046 (Version 1)
Quarter: 2022Q2

REPORT INFORMATION
  Report Type: Spontaneous
  Country: DE (occurrence: DE)
  Receive Date: 20220622
  Receipt Date: 20220622
  Transmission Date: 20220721
  Serious: Yes (Hospitalization)
  Sender: FDA-Public Use
  Company Number: DE-NOVARTISPH-NVSC2022DE141075

PATIENT
  Age: 81 Year
  Sex: Male
  Weight: 120 kg

DRUGS (2)
  1. DEXAMETHASONE [Suspect]
     Active Substance: DEXAMETHASONE
     Indication: Plasma cell myeloma
     Dosage: 20 MG (DATE OF THE LAST DOSAGE BEFORE EVENT ONSET-13-AUG-2021)
     Route: 065
     Dates: start: 20210715, end: 20210813
  2. VELCADE [Suspect]
     Active Substance: BORTEZOMIB
     Indication: Plasma cell myeloma
     Dosage: 2.6 MG (DATE OF THE LAST DOSAGE BEFORE EVENT ONSET: 12/AUG/2021)
     Route: 065
     Dates: start: 20210715, end: 20210812

REACTIONS (2)
  - Acute kidney injury [Recovered/Resolved]
  - Urinary tract infection [Unknown]

NARRATIVE: CASE EVENT DATE: 20210816
